FAERS Safety Report 25943888 (Version 1)
Quarter: 2025Q4

REPORT INFORMATION
  Report Type: Spontaneous
  Country: JP (occurrence: JP)
  Receive Date: 20251021
  Receipt Date: 20251021
  Transmission Date: 20260117
  Serious: Yes (Other)
  Sender: PHARMOBEDIENT CONSULTING, LLC
  Company Number: JP-Pharmobedient-000345

PATIENT
  Age: 52 Year
  Sex: Male

DRUGS (2)
  1. PEMETREXED DISODIUM [Suspect]
     Active Substance: PEMETREXED DISODIUM
     Indication: Lung adenocarcinoma stage III
  2. DURVALUMAB [Suspect]
     Active Substance: DURVALUMAB
     Indication: Lung adenocarcinoma stage III

REACTIONS (2)
  - Hepatotoxicity [Recovered/Resolved]
  - Decreased appetite [Recovered/Resolved]
